FAERS Safety Report 7460578-0 (Version None)
Quarter: 2011Q2

REPORT INFORMATION
  Report Type: 
  Country: None (occurrence: None)
  Receive Date: 20110419
  Receipt Date: 20110406
  Transmission Date: 20111010
  Serious: Yes (Hospitalization)
  Sender: FDA-Public Use
  Company Number: 2010027240

PATIENT
  Sex: Female
  Weight: 48.5349 kg

DRUGS (19)
  1. VIVAGLOBIN [Suspect]
  2. DOMPERIDONE (DOMPERIDONE) [Concomitant]
  3. NEXIUM (ESOMEPRAZOLE MAGNASIUM) [Concomitant]
  4. QVAR (BETCLOMETASONE DIPROPIONATE) [Concomitant]
  5. PROVENTIL [Concomitant]
  6. NASONEX [Concomitant]
  7. ACIPHEX [Concomitant]
  8. RITUXAN [Concomitant]
  9. PATANASE (OLOPATADINE) [Concomitant]
  10. XOPENEX [Concomitant]
  11. CLARITIN [Concomitant]
  12. CARAFATE [Concomitant]
  13. SYNTHROID [Concomitant]
  14. HYDROCORTONE [Concomitant]
  15. VIVAGLOBIN [Suspect]
     Indication: IMMUNODEFICIENCY COMMON VARIABLE
     Dosage: 9.6 G 1XWEEK, 20 ML VIAL: 9.6 GM (60 ML) WEEKLY IN 4 SITES OVER 90 MIN. SUBCUTANEOUS
     Route: 058
     Dates: start: 20100201
  16. VERAMYST (FLUTICASONE) [Concomitant]
  17. ZEGERID (OMEPRAZOLE SODIUM) [Concomitant]
  18. VIVAGLOBIN [Suspect]
  19. ZANTAC [Concomitant]

REACTIONS (4)
  - INFUSION SITE PAIN [None]
  - RASH [None]
  - BRONCHITIS [None]
  - INFUSION SITE ERYTHEMA [None]
